FAERS Safety Report 5116473-5 (Version None)
Quarter: 2006Q3

REPORT INFORMATION
  Report Type: 
  Country: None (occurrence: None)
  Receive Date: 20060928
  Receipt Date: 20050425
  Transmission Date: 20061208
  Serious: Yes (Hospitalization)
  Sender: FDA-Public Use
  Company Number: FRWYE612025APR05

PATIENT
  Sex: Male
  Weight: 125 kg

DRUGS (1)
  1. ENBREL [Suspect]
     Indication: RHEUMATOID ARTHRITIS
     Route: 058
     Dates: start: 20040427, end: 20050502

REACTIONS (5)
  - ABDOMINAL HAEMATOMA [None]
  - ABDOMINAL STRANGULATED HERNIA [None]
  - PHLEBITIS [None]
  - POSTOPERATIVE ABSCESS [None]
  - VENOUS THROMBOSIS LIMB [None]
